FAERS Safety Report 4910258-8 (Version None)
Quarter: 2006Q1

REPORT INFORMATION
  Report Type: 
  Country: None (occurrence: None)
  Receive Date: 20060209
  Receipt Date: 20051128
  Transmission Date: 20060701
  Serious: Yes (Hospitalization)
  Sender: FDA-Public Use
  Company Number: 2005130205

PATIENT
  Age: 56 Year
  Sex: Female

DRUGS (12)
  1. BEXTRA [Suspect]
     Indication: ARTHRITIS
     Dosage: 10 MG
     Dates: start: 20020822
  2. ANTIBIOTICS (ANTIBIOTICS) [Suspect]
     Indication: SINUSITIS
  3. DETROL LA [Concomitant]
  4. LIPITOR [Concomitant]
  5. DOXAZOSIN (DOXAZOSIN) [Concomitant]
  6. NABUMETONE [Concomitant]
  7. AMARYL [Concomitant]
  8. LOTREL [Concomitant]
  9. NORTRIPTYLINE HCL [Concomitant]
  10. MONTELUKAST (MONTELUKAST) [Concomitant]
  11. COZAAR [Concomitant]
  12. OXYCONTIN [Concomitant]

REACTIONS (1)
  - LEUKOCYTOCLASTIC VASCULITIS [None]
